FAERS Safety Report 14596492 (Version 1)
Quarter: 2018Q1

REPORT INFORMATION
  Report Type: Spontaneous
  Country: DK (occurrence: DK)
  Receive Date: 20180304
  Receipt Date: 20180304
  Transmission Date: 20180509
  Serious: Yes (Other)
  Sender: FDA-Public Use
  Company Number: DK-CONCORDIA PHARMACEUTICALS INC.-E2B_00010394

PATIENT
  Age: 13 Year
  Sex: Male

DRUGS (3)
  1. ISOTRETINOIN ^ORION^ [Concomitant]
     Active Substance: ISOTRETINOIN
     Indication: ACNE CYSTIC
     Dosage: STYRKE: 20 MG.
     Route: 048
     Dates: start: 20160902, end: 20160927
  2. PREDNISOLONE. [Suspect]
     Active Substance: PREDNISOLONE
     Indication: STEROID THERAPY
     Dosage: STYRKE: PATIENTEN HAR F?ET FLERE FORSKELLIGE DOSER OG STYRKER
     Route: 048
     Dates: start: 20160902, end: 20170220
  3. ISOTRETINOIN ^ACTAVIS^ [Concomitant]
     Active Substance: ISOTRETINOIN
     Indication: ACNE CYSTIC
     Dosage: STYRKE: 20 MG.
     Route: 048
     Dates: start: 20161024, end: 20170814

REACTIONS (4)
  - Depressive symptom [Recovering/Resolving]
  - Aggression [Recovering/Resolving]
  - Sleep disorder [Recovering/Resolving]
  - Feeling of despair [Recovering/Resolving]

NARRATIVE: CASE EVENT DATE: 20170101
